FAERS Safety Report 14686663 (Version 1)
Quarter: 2018Q1

REPORT INFORMATION
  Report Type: Report from Study
  Country: US (occurrence: US)
  Receive Date: 20180327
  Receipt Date: 20180327
  Transmission Date: 20180509
  Serious: Yes (Other)
  Sender: FDA-Public Use
  Company Number: US-DSJP-DSU-2018-110588

PATIENT

DRUGS (2)
  1. BLINDED CS-866CMB [Suspect]
     Active Substance: HYDROCHLOROTHIAZIDE\OLMESARTAN MEDOXOMIL
     Dosage: 40/12.5 MG, QD
     Route: 065
  2. BLINDED CS-866CMB [Suspect]
     Active Substance: HYDROCHLOROTHIAZIDE\OLMESARTAN MEDOXOMIL
     Indication: HYPERTENSION
     Dosage: 20/12.5 MG, QD
     Route: 065

REACTIONS (12)
  - Angina unstable [Unknown]
  - Hyperuricaemia [Unknown]
  - Diarrhoea [Unknown]
  - Headache [Unknown]
  - Dizziness [Unknown]
  - Asthenia [Unknown]
  - Coronary artery disease [Unknown]
  - Hypotension [Unknown]
  - Hypokalaemia [Unknown]
  - Pharyngitis [Unknown]
  - Blood creatinine increased [Unknown]
  - Bronchitis [Unknown]
